FAERS Safety Report 6540053-8 (Version None)
Quarter: 2010Q1

REPORT INFORMATION
  Report Type: 
  Country: None (occurrence: None)
  Receive Date: 20100115
  Receipt Date: 20100112
  Transmission Date: 20100710
  Serious: Yes (Hospitalization)
  Sender: FDA-Public Use
  Company Number: IT-TEVA-220499ISR

PATIENT
  Sex: Female

DRUGS (1)
  1. MESALAZINE [Suspect]

REACTIONS (1)
  - OEDEMA [None]
